FAERS Safety Report 8999505 (Version 1)
Quarter: 2013Q1

REPORT INFORMATION
  Report Type: Spontaneous
  Country: CH (occurrence: CH)
  Receive Date: 20130103
  Receipt Date: 20130103
  Transmission Date: 20140127
  Serious: Yes (Hospitalization)
  Sender: FDA-Public Use
  Company Number: CH-BAYER-2012-135431

PATIENT
  Age: 80 Year
  Sex: Male
  Weight: 86 kg

DRUGS (7)
  1. XARELTO [Suspect]
     Indication: CEREBROVASCULAR ACCIDENT PROPHYLAXIS
     Dosage: 20 MG, QD
     Route: 048
     Dates: start: 20120918, end: 20121022
  2. XARELTO [Interacting]
     Indication: ATRIAL FIBRILLATION
  3. ASPIRIN CARDIO [Interacting]
     Dosage: 100 MG, QD
     Route: 048
     Dates: start: 1992
  4. CONCOR [Concomitant]
     Dosage: 2.5 MG, QD
     Dates: start: 20120720
  5. FLUDEX [Concomitant]
  6. PANTOPRAZOLE [Concomitant]
     Dosage: 40 MG, QD
     Route: 048
     Dates: start: 20120918
  7. SINTROM [Concomitant]

REACTIONS (3)
  - Angina pectoris [Recovered/Resolved]
  - Anaemia [Recovered/Resolved]
  - Drug interaction [None]
